FAERS Safety Report 9321825 (Version 1)
Quarter: 2013Q2

REPORT INFORMATION
  Report Type: Report from Study
  Country: US (occurrence: US)
  Receive Date: 20130531
  Receipt Date: 20130531
  Transmission Date: 20140414
  Serious: No
  Sender: FDA-Public Use
  Company Number: US-ABBOTT-12P-163-1014801-00

PATIENT
  Sex: Male

DRUGS (1)
  1. MARINOL [Suspect]
     Indication: DECREASED APPETITE
     Dates: start: 20121120, end: 20121128

REACTIONS (1)
  - Drug ineffective [Not Recovered/Not Resolved]
